FAERS Safety Report 9661868 (Version 2)
Quarter: 2013Q4

REPORT INFORMATION
  Report Type: Spontaneous
  Country: CA (occurrence: None)
  Receive Date: 20131030
  Receipt Date: 20131211
  Transmission Date: 20140711
  Serious: Yes (Hospitalization)
  Sender: FDA-Public Use
  Company Number: UTC-039523

PATIENT
  Age: 33 Year
  Sex: Female

DRUGS (1)
  1. REMODULIN [Suspect]
     Indication: PULMONARY ARTERIAL HYPERTENSION
     Dosage: 28.8 UG/KG (0.02 UG/KG, 1 IN 1 MIN), SUBCUTANEOUS
     Route: 058
     Dates: start: 20130530

REACTIONS (11)
  - Infusion site infection [None]
  - Infusion site abscess [None]
  - Influenza [None]
  - Pulmonary arterial hypertension [None]
  - Epistaxis [None]
  - Haemoptysis [None]
  - Diarrhoea [None]
  - Migraine [None]
  - Infusion site discolouration [None]
  - Pain in extremity [None]
  - Pain in jaw [None]
